FAERS Safety Report 4383586-5 (Version None)
Quarter: 2004Q2

REPORT INFORMATION
  Report Type: 
  Country: None (occurrence: None)
  Receive Date: 20040618
  Receipt Date: 20040608
  Transmission Date: 20050107
  Serious: Yes (Disabling)
  Sender: FDA-Public Use
  Company Number: K200400861

PATIENT
  Age: 25 Year
  Sex: Female

DRUGS (4)
  1. NORDETTE-21 [Suspect]
     Indication: ORAL CONTRACEPTION
     Dosage: 1 TAB, ORAL
     Route: 048
     Dates: end: 20030521
  2. COCAINE (COCAINE) [Concomitant]
  3. ECSTASY [Concomitant]
  4. ALCOHOL (ETHANOL) [Concomitant]

REACTIONS (4)
  - ABORTION SPONTANEOUS [None]
  - DRUG EXPOSURE DURING PREGNANCY [None]
  - GYNAECOLOGICAL CHLAMYDIA INFECTION [None]
  - PREGNANCY ON ORAL CONTRACEPTIVE [None]
